FAERS Safety Report 22233632 (Version 1)
Quarter: 2023Q2

REPORT INFORMATION
  Report Type: Spontaneous
  Country: US (occurrence: None)
  Receive Date: 20230420
  Receipt Date: 20230420
  Transmission Date: 20230721
  Serious: No
  Sender: FDA-Public Use
  Company Number: 2023A069755

PATIENT
  Sex: Male

DRUGS (14)
  1. TEZSPIRE [Suspect]
     Active Substance: TEZEPELUMAB-EKKO
     Indication: Asthma
     Dosage: 210MG 1.91ML
     Route: 058
  2. METOPROLOL TARTRATE [Suspect]
     Active Substance: METOPROLOL TARTRATE
     Route: 048
  3. AMITRIPTYLINE [Concomitant]
     Active Substance: AMITRIPTYLINE
  4. BUSPIRONE HC [Concomitant]
  5. PREDNISONE [Concomitant]
     Active Substance: PREDNISONE
  6. VITAMIN D3 [Concomitant]
     Active Substance: CHOLECALCIFEROL
  7. BACLOFEN [Concomitant]
     Active Substance: BACLOFEN
  8. ATORVASTATIN [Concomitant]
     Active Substance: ATORVASTATIN
  9. MELOXICAM [Concomitant]
     Active Substance: MELOXICAM
  10. MONTELUKAST [Concomitant]
     Active Substance: MONTELUKAST SODIUM
  11. PANTOPRAZOLE [Concomitant]
     Active Substance: PANTOPRAZOLE
  12. ROPINIROLE H [Concomitant]
  13. TAMSULOSIN H [Concomitant]
  14. VERA AMIL HC [Concomitant]

REACTIONS (5)
  - Hypersomnia [Not Recovered/Not Resolved]
  - Multiple sclerosis [Not Recovered/Not Resolved]
  - Middle insomnia [Unknown]
  - Chest discomfort [Unknown]
  - Dyspnoea [Unknown]
